FAERS Safety Report 6429448-0 (Version None)
Quarter: 2009Q4

REPORT INFORMATION
  Report Type: 
  Country: None (occurrence: None)
  Receive Date: 20091105
  Receipt Date: 20090601
  Transmission Date: 20100525
  Serious: No
  Sender: FDA-Public Use
  Company Number: US-ABBOTT-09P-163-0577176-00

PATIENT
  Sex: Female

DRUGS (6)
  1. KALETRA [Suspect]
     Indication: HIV INFECTION
     Route: 048
  2. ADVAIR DISKUS 100/50 [Concomitant]
     Indication: ASTHMA
  3. ALBUTEROL [Concomitant]
     Indication: ASTHMA
  4. LOTRISONE [Concomitant]
     Indication: RASH
  5. XYZAL [Concomitant]
     Indication: ASTHMA
     Dosage: 5 MG
  6. FEMVIR [Concomitant]
     Indication: DRUG USE FOR UNKNOWN INDICATION

REACTIONS (1)
  - DRUG SCREEN POSITIVE [None]
